FAERS Safety Report 21726847 (Version 2)
Quarter: 2023Q2

REPORT INFORMATION
  Report Type: Report from Study
  Country: IT (occurrence: IT)
  Receive Date: 20221214
  Receipt Date: 20230622
  Transmission Date: 20230721
  Serious: Yes (Hospitalization)
  Sender: FDA-Public Use
  Company Number: IT-BAXTER-2022BAX030544

PATIENT
  Age: 59 Year
  Sex: Female
  Weight: 77 kg

DRUGS (2)
  1. DOXORUBICIN [Suspect]
     Active Substance: DOXORUBICIN
     Indication: Ovarian cancer recurrent
     Dosage: 55 MILLIGRAM, Q4W, DOSAGE FORM: CONCENTRATE FOR SOLUTION FOR INFUSION
     Route: 042
     Dates: start: 20200129, end: 20200226
  2. YONDELIS [Suspect]
     Active Substance: TRABECTEDIN
     Indication: Ovarian cancer recurrent
     Dosage: 2 MILLIGRAM, Q4W, DOSAGE FORM: POWDER FOR CONCENTRATE FOR SOLUTION FOR INFUSION
     Route: 042
     Dates: start: 20200129, end: 20200226

REACTIONS (1)
  - Intestinal obstruction [Recovered/Resolved]

NARRATIVE: CASE EVENT DATE: 20200303
